FAERS Safety Report 5289546-4 (Version None)
Quarter: 2007Q3

REPORT INFORMATION
  Report Type: 
  Country: None (occurrence: None)
  Receive Date: 20070406
  Receipt Date: 20070326
  Transmission Date: 20080115
  Serious: Yes (Other)
  Sender: FDA-Public Use
  Company Number: PHBS2007CR05464

PATIENT
  Age: 23 Year
  Sex: Female

DRUGS (3)
  1. ENZIPRIDE [Concomitant]
     Dosage: 1 DF, QD
     Route: 048
  2. LEXOTAN [Concomitant]
     Dosage: 3 MG, QD
     Route: 065
  3. ZELNORM [Suspect]
     Indication: CONSTIPATION
     Dosage: 3 MG, BID
     Route: 048
     Dates: start: 20060530, end: 20060801

REACTIONS (1)
  - VASCULITIS [None]
